FAERS Safety Report 25676495 (Version 2)
Quarter: 2025Q3

REPORT INFORMATION
  Report Type: Spontaneous
  Country: JP (occurrence: JP)
  Receive Date: 20250813
  Receipt Date: 20250915
  Transmission Date: 20251021
  Serious: Yes (Hospitalization)
  Sender: GUERBET
  Company Number: JP-GUERBETG_JAPAN-JP-20250140

PATIENT
  Age: 81 Year
  Sex: Female

DRUGS (4)
  1. OPTIRAY [Suspect]
     Active Substance: IOVERSOL
     Indication: Computerised tomogram thorax
     Route: 042
     Dates: start: 20250805, end: 20250805
  2. OPTIRAY [Suspect]
     Active Substance: IOVERSOL
     Indication: Computerised tomogram abdomen
  3. MEDROL [Concomitant]
     Active Substance: METHYLPREDNISOLONE
     Indication: Premedication
  4. vasolan [Concomitant]
     Indication: Palpitations
     Route: 048

REACTIONS (4)
  - Blood pressure decreased [Recovered/Resolved]
  - Hypoaesthesia [Recovered/Resolved]
  - Cough [Recovered/Resolved]
  - Chest discomfort [Recovered/Resolved]

NARRATIVE: CASE EVENT DATE: 20250805
